FAERS Safety Report 8574939-X (Version None)
Quarter: 2012Q3

REPORT INFORMATION
  Report Type: 
  Country: None (occurrence: None)
  Receive Date: 20120807
  Receipt Date: 20120726
  Transmission Date: 20120928
  Serious: Yes (Other)
  Sender: FDA-Public Use
  Company Number: US-BAYER-2011-114527

PATIENT
  Age: 47 Year
  Sex: Female
  Weight: 124.72 kg

DRUGS (13)
  1. DROSPIRENONE AND ETHINYL ESTRADIOL [Suspect]
     Dosage: UNK
     Route: 048
     Dates: start: 20080712, end: 20091001
  2. YASMIN [Suspect]
     Indication: CONTRACEPTION
     Dosage: UNK
     Route: 048
     Dates: start: 20050101, end: 20080712
  3. VOLTAREN [Concomitant]
     Dosage: UNK UNK, BID
     Route: 061
  4. AMOXICILLIN [Concomitant]
     Dosage: 500 MG, CAPSULES
  5. TRIAMCINOLONE [Concomitant]
  6. LIDOCAINE [Concomitant]
  7. CLOBETASOL PROPIONATE [Concomitant]
  8. PERCOCET [Concomitant]
     Indication: PAIN
  9. ZYRTEC [Concomitant]
     Dosage: 10 MG, UNK
     Route: 048
  10. PRILOSEC [Concomitant]
     Indication: DYSPEPSIA
     Dosage: UNK UNK, PRN
  11. KENALOG [Concomitant]
     Dosage: 40 MG, UNK
     Route: 014
  12. LIDOCAINE [Concomitant]
     Dosage: 2 ML, UNK
     Route: 014
  13. FLUCONAZOLE [Concomitant]
     Dosage: 150 MG, TABLETS

REACTIONS (8)
  - GENERAL PHYSICAL HEALTH DETERIORATION [None]
  - ANXIETY [None]
  - INJURY [None]
  - WEIGHT INCREASED [None]
  - FEAR [None]
  - PAIN [None]
  - EMOTIONAL DISTRESS [None]
  - DEEP VEIN THROMBOSIS [None]
